FAERS Safety Report 8515552-X (Version None)
Quarter: 2012Q3

REPORT INFORMATION
  Report Type: 
  Country: None (occurrence: None)
  Receive Date: 20120717
  Receipt Date: 20120709
  Transmission Date: 20120928
  Serious: Yes (Hospitalization, Other)
  Sender: FDA-Public Use
  Company Number: PHHY2012BR060144

PATIENT
  Sex: Female

DRUGS (4)
  1. IMATINIB MESYLATE [Suspect]
     Indication: CHRONIC MYELOID LEUKAEMIA
     Dosage: UNK UKN, UNK
     Route: 048
     Dates: start: 20060101
  2. IMATINIB MESYLATE [Suspect]
     Dosage: UNK UKN, UNK
     Route: 048
  3. DASATINIB [Suspect]
     Dosage: UNK UKN, UNK
  4. NILOTINIB [Suspect]
     Dosage: UNK UKN, UNK

REACTIONS (8)
  - LARYNGEAL OEDEMA [None]
  - NAUSEA [None]
  - VOMITING [None]
  - DIARRHOEA [None]
  - QUALITY OF LIFE DECREASED [None]
  - HYPERSENSITIVITY [None]
  - MALABSORPTION [None]
  - TONGUE OEDEMA [None]
